APPROVED DRUG PRODUCT: ALOCRIL
Active Ingredient: NEDOCROMIL SODIUM
Strength: 2% **Federal Register determination that product was not discontinued or withdrawn for safety or effectiveness reasons**
Dosage Form/Route: SOLUTION/DROPS;OPHTHALMIC
Application: N021009 | Product #001
Applicant: ALLERGAN INC
Approved: Dec 8, 1999 | RLD: Yes | RS: No | Type: DISCN